FAERS Safety Report 6452725-4 (Version None)
Quarter: 2009Q4

REPORT INFORMATION
  Report Type: 
  Country: None (occurrence: None)
  Receive Date: 20091116
  Receipt Date: 20091105
  Transmission Date: 20100525
  Serious: Yes (Hospitalization)
  Sender: FDA-Public Use
  Company Number: 2009SP034790

PATIENT
  Age: 73 Year
  Sex: Male

DRUGS (6)
  1. ORGARAN [Suspect]
     Indication: DRUG USE FOR UNKNOWN INDICATION
  2. AUGMENTIN [Suspect]
     Indication: SEPSIS
     Dates: start: 20090721, end: 20090806
  3. TAZOCILLINE (PIP/TAZO) [Suspect]
     Indication: SEPSIS
     Dates: start: 20090724, end: 20090726
  4. TAZOCILLINE (PIP/TAZO) [Suspect]
     Indication: SEPSIS
     Dates: start: 20090810, end: 20090813
  5. CIPROFLOXACIN HCL [Suspect]
     Indication: SEPSIS
     Dates: start: 20090724, end: 20090726
  6. PIPERACILLIN SODIUM [Suspect]
     Indication: SEPSIS
     Dates: start: 20090813, end: 20090819

REACTIONS (1)
  - THROMBOCYTOPENIA [None]
